FAERS Safety Report 23257593 (Version 1)
Quarter: 2023Q4

REPORT INFORMATION
  Report Type: Report from Study
  Country: CA (occurrence: CA)
  Receive Date: 20231204
  Receipt Date: 20231204
  Transmission Date: 20240109
  Serious: Yes (Hospitalization)
  Sender: FDA-Public Use
  Company Number: CA-JNJFOC-20231068476

PATIENT
  Age: 58 Year
  Sex: Male

DRUGS (3)
  1. STELARA [Suspect]
     Active Substance: USTEKINUMAB
     Indication: Crohn^s disease
     Route: 058
     Dates: start: 20190322
  2. STELARA [Suspect]
     Active Substance: USTEKINUMAB
  3. AZATHIOPRINE [Concomitant]
     Active Substance: AZATHIOPRINE
     Indication: Crohn^s disease
     Route: 048

REACTIONS (4)
  - Pneumonia [Unknown]
  - COVID-19 [Unknown]
  - Pulmonary haemorrhage [Unknown]
  - Accident at work [Unknown]

NARRATIVE: CASE EVENT DATE: 20231025
